FAERS Safety Report 8772961 (Version 1)
Quarter: 2012Q4

REPORT INFORMATION
  Report Type: 
  Country: US (occurrence: US)
  Receive Date: 20120907
  Receipt Date: 20120907
  Transmission Date: 20130627
  Serious: Yes (Death, Other)
  Sender: FDA-Public Use
  Company Number: US-NAPPMUNDI-USA-2012-0089643

PATIENT
  Age: 56 Year
  Sex: Male
  Weight: 103.86 kg

DRUGS (4)
  1. OXYCODONE HYDROCHLORIDE (SIMILAR TO NDA 22-272) [Suspect]
     Indication: PRODUCT USED FOR UNKNOWN INDICATION
     Route: 048
  2. METHAMPHETAMINE [Suspect]
     Indication: PRODUCT USED FOR UNKNOWN INDICATION
  3. ETHYL ALCOHOL [Suspect]
     Indication: ALCOHOL USE
     Route: 048
  4. AMPHETAMINE [Suspect]
     Indication: PRODUCT USED FOR UNKNOWN INDICATION

REACTIONS (4)
  - Accidental overdose [Fatal]
  - Substance abuse [Unknown]
  - Drowning [Fatal]
  - Arteriosclerosis coronary artery [Fatal]
